FAERS Safety Report 9252266 (Version 1)
Quarter: 2013Q1

REPORT INFORMATION
  Report Type: Spontaneous
  Country: US (occurrence: None)
  Receive Date: 20130305
  Receipt Date: 20130305
  Transmission Date: 20140127
  Serious: Yes (Other)
  Sender: FDA-Public Use
  Company Number: 163-21880-12091112

PATIENT
  Age: 65 Year
  Sex: Male

DRUGS (1)
  1. REVLIMID [Suspect]
     Indication: PLASMA CELL MYELOMA
     Dosage: 21 IN 21 D
     Route: 048
     Dates: start: 20120720, end: 2012

REACTIONS (9)
  - Chest discomfort [None]
  - Rash [None]
  - Pain [None]
  - Cough [None]
  - Dizziness [None]
  - Chest pain [None]
  - Back pain [None]
  - Nasopharyngitis [None]
  - Malaise [None]
